FAERS Safety Report 10257505 (Version 1)
Quarter: 2014Q2

REPORT INFORMATION
  Report Type: Spontaneous
  Country: US (occurrence: US)
  Receive Date: 20140625
  Receipt Date: 20140625
  Transmission Date: 20141212
  Serious: No
  Sender: FDA-Public Use
  Company Number: US-GLAXOSMITHKLINE-A1049200A

PATIENT
  Sex: Female

DRUGS (24)
  1. VERAMYST [Suspect]
     Indication: RHINITIS ALLERGIC
     Dosage: 2PUFF PER DAY
     Route: 045
  2. HUMULIN R [Concomitant]
  3. METFORMIN [Concomitant]
  4. SYMBICORT [Concomitant]
  5. PRO-AIR [Concomitant]
  6. THEOPHYLLINE [Concomitant]
  7. SPIRIVA [Concomitant]
  8. MONTELUKAST [Concomitant]
  9. AZELASTINE [Concomitant]
  10. ALLEGRA [Concomitant]
  11. ALAVERT [Concomitant]
  12. VERAMYST [Concomitant]
  13. ESCITALOPRAM [Concomitant]
  14. DILTIAZEM [Concomitant]
  15. HCTZ [Concomitant]
  16. DIOVAN HCT [Concomitant]
  17. KCL [Concomitant]
  18. ATORVASTATIN [Concomitant]
  19. ENABLEX [Concomitant]
  20. FUROSEMIDE [Concomitant]
  21. VITAMIN D3 [Concomitant]
  22. MAGNESIUM [Concomitant]
  23. GLUCOSAMINE CHONDROITIN [Concomitant]
  24. PRILOSEC [Concomitant]

REACTIONS (2)
  - Drug ineffective [Unknown]
  - Product quality issue [Unknown]
